FAERS Safety Report 6391630-9 (Version None)
Quarter: 2009Q4

REPORT INFORMATION
  Report Type: 
  Country: None (occurrence: None)
  Receive Date: 20091007
  Receipt Date: 20090820
  Transmission Date: 20100525
  Serious: No
  Sender: FDA-Public Use
  Company Number: A0803301A

PATIENT
  Age: 60 Year
  Sex: Male

DRUGS (6)
  1. ADVAIR DISKUS 100/50 [Suspect]
     Indication: CHRONIC OBSTRUCTIVE PULMONARY DISEASE
     Dosage: 1PUFF TWICE PER DAY
     Route: 055
  2. COMBIVENT [Concomitant]
  3. NASONEX [Concomitant]
  4. PRILOSEC [Concomitant]
  5. UNSPECIFIED MEDICATION [Concomitant]
  6. ASPIRIN [Concomitant]

REACTIONS (2)
  - CONJUNCTIVITIS INFECTIVE [None]
  - OCULAR HYPERAEMIA [None]
